FAERS Safety Report 5688104-7 (Version None)
Quarter: 2008Q1

REPORT INFORMATION
  Report Type: 
  Country: None (occurrence: None)
  Receive Date: 20080327
  Receipt Date: 20080317
  Transmission Date: 20080703
  Serious: No
  Sender: FDA-Public Use
  Company Number: US023011

PATIENT
  Age: 45 Year
  Sex: Male
  Weight: 86.1834 kg

DRUGS (4)
  1. FENTORA [Suspect]
     Indication: NEURALGIA
     Dosage: 800 UG BUCCAL
     Route: 002
  2. FENTANYL [Concomitant]
  3. LISINOPRIL [Concomitant]
  4. METOPROLOL TARTRATE [Concomitant]

REACTIONS (1)
  - DRUG PRESCRIBING ERROR [None]
